FAERS Safety Report 24387783 (Version 1)
Quarter: 2024Q4

REPORT INFORMATION
  Report Type: Spontaneous
  Country: US (occurrence: None)
  Receive Date: 20241002
  Receipt Date: 20241002
  Transmission Date: 20250115
  Serious: Yes (Hospitalization)
  Sender: Public
  Company Number: None

PATIENT
  Weight: 63.5 kg

DRUGS (2)
  1. XELODA [Suspect]
     Active Substance: CAPECITABINE
  2. ELOXATIN [Concomitant]
     Active Substance: OXALIPLATIN

REACTIONS (4)
  - Nausea [None]
  - Diarrhoea [None]
  - Dehydration [None]
  - Nephrolithiasis [None]

NARRATIVE: CASE EVENT DATE: 20240901
